FAERS Safety Report 8583842-0 (Version None)
Quarter: 2012Q3

REPORT INFORMATION
  Report Type: 
  Country: None (occurrence: None)
  Receive Date: 20120810
  Receipt Date: 20120731
  Transmission Date: 20120928
  Serious: Yes (Other)
  Sender: FDA-Public Use
  Company Number: US-009507513-1207USA009607

PATIENT

DRUGS (1)
  1. PROPECIA [Suspect]
     Dosage: UNK
     Route: 048

REACTIONS (3)
  - PROSTATE CANCER [None]
  - PROSTATIC SPECIFIC ANTIGEN INCREASED [None]
  - DRUG DOSE OMISSION [None]
